FAERS Safety Report 25343540 (Version 1)
Quarter: 2025Q2

REPORT INFORMATION
  Report Type: Report from Study
  Country: US (occurrence: US)
  Receive Date: 20250521
  Receipt Date: 20250521
  Transmission Date: 20250717
  Serious: Yes (Other)
  Sender: ALEXION PHARMACEUTICALS
  Company Number: US-AstraZeneca-CH-00872734A

PATIENT
  Weight: 82.2 kg

DRUGS (17)
  1. SELUMETINIB [Suspect]
     Active Substance: SELUMETINIB
     Indication: Neurofibromatosis
     Dosage: 50 MILLIGRAM, BID
     Route: 065
  2. BACLOFEN [Concomitant]
     Active Substance: BACLOFEN
     Route: 065
  3. ZETIA [Concomitant]
     Active Substance: EZETIMIBE
     Route: 065
  4. REMERON [Concomitant]
     Active Substance: MIRTAZAPINE
     Route: 065
  5. TAMSULOSIN [Concomitant]
     Active Substance: TAMSULOSIN
     Route: 065
  6. PANTOPRAZOLE [Concomitant]
     Active Substance: PANTOPRAZOLE
     Route: 065
  7. OXCARBAZEPINE [Concomitant]
     Active Substance: OXCARBAZEPINE
     Route: 065
  8. GABAPENTIN [Concomitant]
     Active Substance: GABAPENTIN
     Route: 065
  9. Vitamin k2 + d3 [Concomitant]
     Route: 065
  10. PRISTIQ EXTENDED-RELEASE [Concomitant]
     Active Substance: DESVENLAFAXINE SUCCINATE
     Route: 065
  11. Alive mens ultra potency complete multivitamin [Concomitant]
     Route: 065
  12. KLONOPIN [Concomitant]
     Active Substance: CLONAZEPAM
  13. REPATHA [Concomitant]
     Active Substance: EVOLOCUMAB
     Route: 065
  14. PRAVASTATIN [Concomitant]
     Active Substance: PRAVASTATIN
     Route: 065
  15. TYLENOL [Concomitant]
     Active Substance: ACETAMINOPHEN
     Route: 065
  16. Align probiotic digestive support advanced [Concomitant]
     Route: 065
  17. LOSARTAN [Concomitant]
     Active Substance: LOSARTAN
     Route: 065

REACTIONS (3)
  - Cerebrovascular accident [Unknown]
  - Oedema peripheral [Unknown]
  - Blood pressure increased [Unknown]
